FAERS Safety Report 20087482 (Version 2)
Quarter: 2021Q4

REPORT INFORMATION
  Report Type: Other
  Country: None (occurrence: CN)
  Receive Date: 20211118
  Receipt Date: 20211118
  Transmission Date: 20220303
  Serious: Yes (Hospitalization)
  Sender: FDA-Public Use
  Company Number: CN-B.Braun Medical Inc.-2122022

PATIENT
  Age: 21 Year
  Sex: Female

DRUGS (1)
  1. CLOROTEKAL [Suspect]
     Active Substance: CHLOROPROCAINE HYDROCHLORIDE

REACTIONS (2)
  - Anaesthetic complication [Recovered/Resolved]
  - Spinal subdural haematoma [Recovered/Resolved]
